FAERS Safety Report 7278289-3 (Version None)
Quarter: 2011Q1

REPORT INFORMATION
  Report Type: 
  Country: None (occurrence: None)
  Receive Date: 20110207
  Receipt Date: 20110131
  Transmission Date: 20110831
  Serious: Yes (Other)
  Sender: FDA-Public Use
  Company Number: US-ALEXION-A201100119

PATIENT
  Sex: Female

DRUGS (7)
  1. CALCIUM WITH VITAMIN D             /00944201/ [Concomitant]
     Dosage: UNK
     Route: 048
  2. SOLIRIS [Suspect]
     Indication: PAROXYSMAL NOCTURNAL HAEMOGLOBINURIA
     Dosage: 600 MG, QW
     Route: 042
     Dates: start: 20070625, end: 20070701
  3. LISINOPRIL [Concomitant]
     Dosage: UNK
     Route: 048
  4. SOLIRIS [Suspect]
     Dosage: 900 MG, Q2W
     Route: 042
     Dates: start: 20070701
  5. FOSAMAX [Concomitant]
     Dosage: UNK
     Route: 048
  6. FOLIC ACID [Concomitant]
     Dosage: UNK
     Route: 048
  7. AMLODIPINE [Concomitant]
     Dosage: UNK
     Route: 048

REACTIONS (2)
  - FOOT FRACTURE [None]
  - FALL [None]
